FAERS Safety Report 23090080 (Version 1)
Quarter: 2023Q4

REPORT INFORMATION
  Report Type: Spontaneous
  Country: CN (occurrence: CN)
  Receive Date: 20231020
  Receipt Date: 20231020
  Transmission Date: 20240110
  Serious: Yes (Hospitalization, Other)
  Sender: FDA-Public Use
  Company Number: None

PATIENT
  Age: 60 Year
  Sex: Female
  Weight: 44 kg

DRUGS (4)
  1. CYCLOPHOSPHAMIDE [Suspect]
     Active Substance: CYCLOPHOSPHAMIDE
     Indication: Anti-neutrophil cytoplasmic antibody positive vasculitis
     Dosage: 200 MG, ONE TIME IN ONE DAY, DILUTED WITH 250 ML OF 0.9 % SODIUM CHLORIDE, PULSE THERAPY
     Route: 041
     Dates: start: 20230910, end: 20230910
  2. CYCLOPHOSPHAMIDE [Suspect]
     Active Substance: CYCLOPHOSPHAMIDE
     Dosage: 400 MG, ONE TIME IN ONE DAY, DILUTED WITH 250 ML OF 0.9 % SODIUM CHLORIDE, PULSE THERAPY
     Route: 041
     Dates: start: 20230911, end: 20230911
  3. SODIUM CHLORIDE [Suspect]
     Active Substance: SODIUM CHLORIDE
     Indication: Medication dilution
     Dosage: 250 ML, ONE TIME IN ONE DAY, USED TO DILUTE 200 MG OF CYCLOPHOSPHAMIDE
     Route: 041
     Dates: start: 20230910, end: 20230910
  4. SODIUM CHLORIDE [Suspect]
     Active Substance: SODIUM CHLORIDE
     Dosage: 250 ML, ONE TIME IN ONE DAY, USED TO DILUTE 400 MG OF CYCLOPHOSPHAMIDE
     Route: 041
     Dates: start: 20230911, end: 20230911

REACTIONS (1)
  - Myelosuppression [Recovering/Resolving]

NARRATIVE: CASE EVENT DATE: 20230922
